FAERS Safety Report 7549756-X (Version None)
Quarter: 2011Q2

REPORT INFORMATION
  Report Type: 
  Country: None (occurrence: None)
  Receive Date: 20110615
  Receipt Date: 20060524
  Transmission Date: 20111010
  Serious: Yes (Other)
  Sender: FDA-Public Use
  Company Number: PHFR2004GB02853

PATIENT
  Sex: Male

DRUGS (2)
  1. CLOZAPINE [Suspect]
     Indication: SCHIZOPHRENIA
     Dosage: 325 MG, QD
     Route: 048
     Dates: start: 19940120, end: 20060519
  2. CHLORAMBUCIL [Concomitant]
     Route: 065

REACTIONS (8)
  - LYMPHOCYTE COUNT INCREASED [None]
  - MONOCYTE COUNT INCREASED [None]
  - EOSINOPHIL COUNT INCREASED [None]
  - BARRETT'S OESOPHAGUS [None]
  - WHITE BLOOD CELL COUNT INCREASED [None]
  - ANAEMIA [None]
  - CHRONIC LYMPHOCYTIC LEUKAEMIA [None]
  - HAEMOGLOBIN DECREASED [None]
